FAERS Safety Report 24943874 (Version 1)
Quarter: 2025Q1

REPORT INFORMATION
  Report Type: Spontaneous
  Country: US (occurrence: US)
  Receive Date: 20250207
  Receipt Date: 20250207
  Transmission Date: 20250409
  Serious: Yes (Death, Other)
  Sender: PURDUE
  Company Number: US-PURDUE-USA-2025-0315154

PATIENT
  Sex: Male

DRUGS (3)
  1. DEXTROAMPHETAMINE SACCHARATE, AMPHETAMINE ASPARTATE, DEXTROAMPHETAMINE [Suspect]
     Active Substance: AMPHETAMINE ASPARTATE\AMPHETAMINE SULFATE\DEXTROAMPHETAMINE SACCHARATE\DEXTROAMPHETAMINE SULFATE
     Indication: Product used for unknown indication
     Route: 048
  2. METHAMPHETAMINE [Suspect]
     Active Substance: METHAMPHETAMINE
     Indication: Product used for unknown indication
     Route: 065
  3. FENTANYL [Suspect]
     Active Substance: FENTANYL
     Indication: Product used for unknown indication
     Route: 065

REACTIONS (7)
  - Road traffic accident [Fatal]
  - Skull fracture [Fatal]
  - Brain injury [Fatal]
  - Chest injury [Fatal]
  - Forearm fracture [Fatal]
  - Skin laceration [Fatal]
  - Drug screen positive [Unknown]

NARRATIVE: CASE EVENT DATE: 20210619
